FAERS Safety Report 5744619-4 (Version None)
Quarter: 2008Q2

REPORT INFORMATION
  Report Type: 
  Country: None (occurrence: None)
  Receive Date: 20080520
  Receipt Date: 20080324
  Transmission Date: 20081010
  Serious: No
  Sender: FDA-Public Use
  Company Number: US-ABBOTT-08P-163-0444053-00

PATIENT

DRUGS (2)
  1. AZMACORT [Suspect]
     Indication: BRONCHITIS
     Route: 055
     Dates: end: 20080322
  2. AZMACORT [Suspect]
     Indication: ASTHMA

REACTIONS (3)
  - BRONCHITIS [None]
  - FEELING ABNORMAL [None]
  - RESPIRATORY TRACT IRRITATION [None]
